FAERS Safety Report 22180390 (Version 2)
Quarter: 2023Q2

REPORT INFORMATION
  Report Type: Spontaneous
  Country: US (occurrence: US)
  Receive Date: 20230406
  Receipt Date: 20230613
  Transmission Date: 20230722
  Serious: Yes (Hospitalization)
  Sender: FDA-Public Use
  Company Number: US-002147023-NVSC2023US076461

PATIENT
  Age: 55 Year
  Sex: Female

DRUGS (1)
  1. KESIMPTA [Suspect]
     Active Substance: OFATUMUMAB
     Indication: Product used for unknown indication
     Dosage: DOSE: 20MG/0.4ML
     Route: 065
     Dates: start: 20230327

REACTIONS (8)
  - Seizure [Unknown]
  - Tremor [Unknown]
  - Pain [Unknown]
  - Oropharyngeal discomfort [Unknown]
  - Feeling abnormal [Not Recovered/Not Resolved]
  - Influenza like illness [Unknown]
  - Chills [Unknown]
  - Headache [Not Recovered/Not Resolved]

NARRATIVE: CASE EVENT DATE: 20230327
